FAERS Safety Report 14182703 (Version 2)
Quarter: 2018Q1

REPORT INFORMATION
  Report Type: Spontaneous
  Country: US (occurrence: US)
  Receive Date: 20171113
  Receipt Date: 20180119
  Transmission Date: 20180508
  Serious: No
  Sender: FDA-Public Use
  Company Number: US-ASTRAZENECA-2017SF13887

PATIENT
  Sex: Male

DRUGS (2)
  1. SYMBICORT [Suspect]
     Active Substance: BUDESONIDE\FORMOTEROL FUMARATE DIHYDRATE
     Dosage: 160/4.5 MICROGRAMS, TWO PUFFS EVERY DAY
     Route: 055
  2. SYMBICORT [Suspect]
     Active Substance: BUDESONIDE\FORMOTEROL FUMARATE DIHYDRATE
     Dosage: 160/4.5 MICROGRAMS, TWO PUFFS TWO TIMES A DAY
     Route: 055
     Dates: start: 2017

REACTIONS (4)
  - Intentional device misuse [Unknown]
  - Bronchitis [Unknown]
  - Intentional product misuse [Recovered/Resolved]
  - Device failure [Unknown]
